FAERS Safety Report 7761016-0 (Version None)
Quarter: 2011Q3

REPORT INFORMATION
  Report Type: 
  Country: None (occurrence: None)
  Receive Date: 20110920
  Receipt Date: 20110913
  Transmission Date: 20111222
  Serious: Yes (Hospitalization)
  Sender: FDA-Public Use
  Company Number: US-BIOGENIDEC-2011BI035217

PATIENT
  Age: 39 Year
  Sex: Female

DRUGS (1)
  1. AVONEX [Suspect]
     Indication: MULTIPLE SCLEROSIS
     Route: 030
     Dates: start: 20100713

REACTIONS (6)
  - HYPERTENSION [None]
  - PYREXIA [None]
  - HYSTERECTOMY [None]
  - BACK PAIN [None]
  - INCISION SITE PAIN [None]
  - PAIN IN EXTREMITY [None]
